FAERS Safety Report 8916886 (Version 3)
Quarter: 2013Q1

REPORT INFORMATION
  Report Type: Spontaneous
  Country: US (occurrence: US)
  Receive Date: 20121120
  Receipt Date: 20130103
  Transmission Date: 20140127
  Serious: No
  Sender: FDA-Public Use
  Company Number: US-PFIZER INC-2012287595

PATIENT
  Age: 91 Year
  Sex: Female
  Weight: 54.42 kg

DRUGS (4)
  1. FLECTOR [Suspect]
     Indication: ARTHRALGIA
     Dosage: UNK %, 2X/DAY
     Route: 061
     Dates: start: 201211
  2. FLECTOR [Suspect]
     Dosage: UNK
  3. POTASSIUM [Concomitant]
     Dosage: UNK, 2X/DAY
  4. LIPITOR [Concomitant]
     Dosage: UNK, DAILY

REACTIONS (2)
  - Drug ineffective [Unknown]
  - Product adhesion issue [Unknown]
